FAERS Safety Report 8962210 (Version 1)
Quarter: 2012Q4

REPORT INFORMATION
  Report Type: 
  Country: US (occurrence: US)
  Receive Date: 20121211
  Receipt Date: 20121211
  Transmission Date: 20130627
  Serious: No
  Sender: FDA-Public Use
  Company Number: US-PFIZER INC-2012306903

PATIENT

DRUGS (1)
  1. GENOTROPIN [Suspect]
     Dosage: UNK
     Dates: end: 201207

REACTIONS (3)
  - Pain [Unknown]
  - Nervous system disorder [Unknown]
  - Functional gastrointestinal disorder [Unknown]
